FAERS Safety Report 6673802-9 (Version None)
Quarter: 2010Q2

REPORT INFORMATION
  Report Type: 
  Country: None (occurrence: None)
  Receive Date: 20100407
  Receipt Date: 20100323
  Transmission Date: 20101027
  Serious: Yes (Other)
  Sender: FDA-Public Use
  Company Number: CN-JNJFOC-20100307016

PATIENT
  Age: 70 Year
  Sex: Male

DRUGS (2)
  1. DACOGEN [Suspect]
     Indication: CHRONIC MYELOMONOCYTIC LEUKAEMIA
     Dosage: INTRAVENOUS; 20 MG, 1 IN 1 DAY, INTRAVENOUS
     Route: 042
     Dates: start: 20100201, end: 20100205
  2. DACOGEN [Suspect]
     Indication: CHRONIC MYELOMONOCYTIC LEUKAEMIA
     Dosage: INTRAVENOUS; 20 MG, 1 IN 1 DAY, INTRAVENOUS
     Route: 042
     Dates: start: 20091101

REACTIONS (1)
  - NECK MASS [None]
